FAERS Safety Report 9360702 (Version 1)
Quarter: 2013Q2

REPORT INFORMATION
  Report Type: Spontaneous
  Country: US (occurrence: None)
  Receive Date: 20130620
  Receipt Date: 20130620
  Transmission Date: 20140414
  Serious: Yes (Disabling)
  Sender: FDA-Public Use
  Company Number: None

PATIENT
  Age: 57 Year
  Sex: Male
  Weight: 95.26 kg

DRUGS (1)
  1. LUPRON [Suspect]
     Indication: PROSTATE CANCER
     Dosage: 2 YEARS - 1 MORE TO GO; 4 MONTHS
     Dates: start: 20120624, end: 20130619

REACTIONS (6)
  - Disturbance in attention [None]
  - Apathy [None]
  - Anhedonia [None]
  - Prostatic specific antigen increased [None]
  - Road traffic accident [None]
  - Decreased interest [None]
